FAERS Safety Report 18338876 (Version 1)
Quarter: 2020Q4

REPORT INFORMATION
  Report Type: Spontaneous
  Country: US (occurrence: US)
  Receive Date: 20201002
  Receipt Date: 20201002
  Transmission Date: 20210113
  Serious: Yes (Hospitalization, Other)
  Sender: FDA-Public Use
  Company Number: US-GLAXOSMITHKLINE-US2020GSK189425

PATIENT
  Age: 68 Year
  Sex: Male

DRUGS (6)
  1. ASPIRIN. [Concomitant]
     Active Substance: ASPIRIN
     Indication: HYPERTENSION
     Dosage: 81 MG, QD
     Route: 048
  2. METOPROLOL SUCCINATE. [Concomitant]
     Active Substance: METOPROLOL SUCCINATE
     Indication: HYPERTENSION
     Dosage: 150 MG, QD
     Route: 048
  3. ACYCLOVIR. [Suspect]
     Active Substance: ACYCLOVIR
     Indication: VARICELLA ZOSTER VIRUS INFECTION
     Dosage: 800 MG (FIVE TIMES DAILY)
     Route: 048
  4. AMLODIPINE [Concomitant]
     Active Substance: AMLODIPINE BESYLATE
     Indication: HYPERTENSION
     Dosage: 5 MG, QD
     Route: 048
  5. INSULIN NPH 70/30 REGULAR [Concomitant]
     Indication: TYPE 2 DIABETES MELLITUS
     Dosage: UNK UNK, BID
  6. ACYCLOVIR. [Suspect]
     Active Substance: ACYCLOVIR
     Indication: RASH VESICULAR
     Dosage: 5 MG/KG
     Route: 042

REACTIONS (15)
  - Neurotoxicity [Recovered/Resolved]
  - Heart rate increased [Recovered/Resolved]
  - Hallucination, auditory [Recovered/Resolved]
  - Body temperature increased [Recovered/Resolved]
  - Incorrect dose administered [Unknown]
  - Confusional state [Recovered/Resolved]
  - Agitation [Recovered/Resolved]
  - Dysarthria [Recovered/Resolved]
  - Uraemic encephalopathy [Recovered/Resolved]
  - Tremor [Recovered/Resolved]
  - Encephalopathy [Recovered/Resolved]
  - Mucosal dryness [Recovered/Resolved]
  - Myoclonus [Recovered/Resolved]
  - Rash erythematous [Recovered/Resolved]
  - Pleocytosis [Recovered/Resolved]
